FAERS Safety Report 15901190 (Version 2)
Quarter: 2019Q1

REPORT INFORMATION
  Report Type: Spontaneous
  Country: US (occurrence: US)
  Receive Date: 20190201
  Receipt Date: 20190212
  Transmission Date: 20190417
  Serious: Yes (Other)
  Sender: FDA-Public Use
  Company Number: US-ASTRAZENECA-2018SF14461

PATIENT

DRUGS (21)
  1. TIZANIDINE. [Concomitant]
     Active Substance: TIZANIDINE
  2. NORTRIPTYLINE [Concomitant]
     Active Substance: NORTRIPTYLINE
  3. PANTOPRAZOLE [Concomitant]
     Active Substance: PANTOPRAZOLE
  4. PRILOSEC OTC [Suspect]
     Active Substance: OMEPRAZOLE MAGNESIUM
     Route: 048
     Dates: start: 201203, end: 201412
  5. MUPIROCIN. [Concomitant]
     Active Substance: MUPIROCIN
  6. JANUVIA [Concomitant]
     Active Substance: SITAGLIPTIN PHOSPHATE
  7. TRAZODONE [Concomitant]
     Active Substance: TRAZODONE HYDROCHLORIDE
  8. TRAMADOL. [Concomitant]
     Active Substance: TRAMADOL
  9. CYMBALTA [Concomitant]
     Active Substance: DULOXETINE HYDROCHLORIDE
  10. METFORMIN [Concomitant]
     Active Substance: METFORMIN HYDROCHLORIDE
  11. DIAZEPAM. [Concomitant]
     Active Substance: DIAZEPAM
  12. GEMFIBROZIL. [Concomitant]
     Active Substance: GEMFIBROZIL
  13. TIZANIDINE. [Concomitant]
     Active Substance: TIZANIDINE
  14. METOCLOPRAMIDE. [Concomitant]
     Active Substance: METOCLOPRAMIDE
  15. PRILOSEC OTC [Suspect]
     Active Substance: OMEPRAZOLE MAGNESIUM
     Route: 048
     Dates: start: 20120523
  16. AMITRIPTYLINE [Concomitant]
     Active Substance: AMITRIPTYLINE
  17. LISINOPRIL. [Concomitant]
     Active Substance: LISINOPRIL
  18. GLIPIZIDE. [Concomitant]
     Active Substance: GLIPIZIDE
  19. LYRICA [Concomitant]
     Active Substance: PREGABALIN
  20. AMITRIPTYLINE [Concomitant]
     Active Substance: AMITRIPTYLINE
  21. NORTRIPTYLINE [Concomitant]
     Active Substance: NORTRIPTYLINE

REACTIONS (2)
  - Chronic kidney disease [Unknown]
  - Renal failure [Unknown]
